FAERS Safety Report 8575703-8 (Version None)
Quarter: 2012Q3

REPORT INFORMATION
  Report Type: 
  Country: None (occurrence: None)
  Receive Date: 20120807
  Receipt Date: 20120730
  Transmission Date: 20120928
  Serious: Yes (Other)
  Sender: FDA-Public Use
  Company Number: BE-009507513-1208BEL001839

PATIENT

DRUGS (1)
  1. NOMEGESTROL ACETATE/ESTRADIOL [Suspect]

REACTIONS (1)
  - DEEP VEIN THROMBOSIS [None]
